FAERS Safety Report 8953003 (Version 2)
Quarter: 2012Q4

REPORT INFORMATION
  Report Type: Report from Study
  Country: CA (occurrence: CA)
  Receive Date: 20121205
  Receipt Date: 20121213
  Transmission Date: 20130627
  Serious: Yes (Other)
  Sender: FDA-Public Use
  Company Number: PHHY2012CA111523

PATIENT
  Weight: 75 kg

DRUGS (4)
  1. ACLASTA/ZOLEDRONATE [Suspect]
     Dosage: UNK UKN, UNK
     Route: 042
  2. PROLIA [Concomitant]
     Dosage: 60 mg, every 6 months
     Route: 058
  3. VITAMIN D [Concomitant]
     Dosage: 500 UKN, BID
  4. CALCIUM [Concomitant]
     Dosage: 100000 UKN, QW

REACTIONS (3)
  - Upper limb fracture [Unknown]
  - Spinal fracture [Unknown]
  - Renal failure chronic [Unknown]
